FAERS Safety Report 9475079 (Version 2)
Quarter: 2013Q3

REPORT INFORMATION
  Report Type: Spontaneous
  Country: US (occurrence: US)
  Receive Date: 20130824
  Receipt Date: 20130830
  Transmission Date: 20140515
  Serious: Yes (Other)
  Sender: FDA-Public Use
  Company Number: US-ROCHE-1265315

PATIENT
  Age: 48 Year
  Sex: Female

DRUGS (1)
  1. ACTILYSE [Suspect]
     Indication: ISCHAEMIC STROKE
     Route: 042

REACTIONS (5)
  - Cerebral haemorrhage [Unknown]
  - Cerebellar haemorrhage [Unknown]
  - Subarachnoid haemorrhage [Unknown]
  - Vascular pseudoaneurysm ruptured [Unknown]
  - Hydrocephalus [Unknown]
